FAERS Safety Report 5073622-5 (Version None)
Quarter: 2006Q3

REPORT INFORMATION
  Report Type: 
  Country: None (occurrence: None)
  Receive Date: 20060803
  Receipt Date: 20060719
  Transmission Date: 20061208
  Serious: Yes (Hospitalization, Other)
  Sender: FDA-Public Use
  Company Number: 2006BH012187

PATIENT
  Age: 60 Year
  Sex: Female

DRUGS (1)
  1. EXTRANEAL [Suspect]
     Indication: PERITONEAL DIALYSIS
     Dosage: IP
     Route: 033

REACTIONS (2)
  - DEVICE INTERACTION [None]
  - HYPOGLYCAEMIA [None]
